FAERS Safety Report 18052009 (Version 1)
Quarter: 2020Q3

REPORT INFORMATION
  Report Type: Spontaneous
  Country: US (occurrence: US)
  Receive Date: 20200721
  Receipt Date: 20200721
  Transmission Date: 20201103
  Serious: Yes (Hospitalization, Other)
  Sender: FDA-Public Use
  Company Number: US-ACTELION-A-US2020-207402

PATIENT
  Age: 10 Year
  Sex: Female

DRUGS (8)
  1. TYVASO [Concomitant]
     Active Substance: TREPROSTINIL
     Dosage: 9 PUFF, QID
  2. DIGOXIN. [Concomitant]
     Active Substance: DIGOXIN
     Indication: TACHYCARDIA
     Dosage: 125 MCG
     Dates: start: 20091103
  3. TRACLEER [Suspect]
     Active Substance: BOSENTAN
     Dosage: UNK, TID
     Route: 048
     Dates: start: 201204, end: 201409
  4. REVATIO [Concomitant]
     Active Substance: SILDENAFIL CITRATE
     Dosage: 40 MG, TID
     Dates: start: 201204
  5. REVATIO [Concomitant]
     Active Substance: SILDENAFIL CITRATE
     Dosage: 20 MG, TID
     Dates: start: 20090527, end: 201204
  6. COUMADIN [Concomitant]
     Active Substance: WARFARIN SODIUM
     Dosage: UNK
     Dates: start: 20090527
  7. TRACLEER [Suspect]
     Active Substance: BOSENTAN
     Indication: PULMONARY ARTERIAL HYPERTENSION
     Dosage: UNK, BID
     Route: 048
     Dates: start: 20090527, end: 201204
  8. TYVASO [Concomitant]
     Active Substance: TREPROSTINIL
     Dosage: UNK
     Dates: start: 20100331

REACTIONS (24)
  - Cardiac arrest [Recovered/Resolved]
  - Unevaluable event [Unknown]
  - Palpitations [Recovered/Resolved]
  - Respiratory tract infection [Recovering/Resolving]
  - Walking distance test abnormal [Unknown]
  - Pericardial effusion [Unknown]
  - Right ventricular systolic pressure increased [Unknown]
  - Loss of consciousness [Recovered/Resolved]
  - Dizziness [Unknown]
  - Atrioventricular block [Recovered/Resolved]
  - Mitral valve incompetence [Unknown]
  - Tricuspid valve incompetence [Unknown]
  - Right atrial pressure increased [Unknown]
  - Right ventricular hypertension [Unknown]
  - Condition aggravated [Unknown]
  - Syncope [Recovered/Resolved]
  - Hypotension [Recovered/Resolved]
  - Right ventricular dysfunction [Unknown]
  - Chest discomfort [Recovered/Resolved]
  - Stress [Recovered/Resolved]
  - Pulmonary valve incompetence [Unknown]
  - Tachycardia [Unknown]
  - Right ventricular hypertrophy [Unknown]
  - Catheterisation cardiac [Unknown]

NARRATIVE: CASE EVENT DATE: 20091102
